FAERS Safety Report 6418192-1 (Version None)
Quarter: 2009Q4

REPORT INFORMATION
  Report Type: 
  Country: None (occurrence: None)
  Receive Date: 20091028
  Receipt Date: 20091021
  Transmission Date: 20100525
  Serious: Yes (Other)
  Sender: FDA-Public Use
  Company Number: BE-ASTRAZENECA-2009SE21489

PATIENT
  Sex: Male

DRUGS (4)
  1. CRESTOR [Suspect]
     Route: 048
  2. STILNOCT [Concomitant]
  3. LOORTAN [Concomitant]
  4. ASPIRIN [Concomitant]
     Route: 065

REACTIONS (1)
  - TENDON RUPTURE [None]
